FAERS Safety Report 4343512-1 (Version None)
Quarter: 2004Q2

REPORT INFORMATION
  Report Type: 
  Country: None (occurrence: None)
  Receive Date: 20040419
  Receipt Date: 20040406
  Transmission Date: 20050107
  Serious: Yes (Death, Life-Threatening)
  Sender: FDA-Public Use
  Company Number: A0506145A

PATIENT
  Age: 63 Year
  Sex: Male
  Weight: 117.9352 kg

DRUGS (3)
  1. COMMIT [Suspect]
     Indication: EX-SMOKER
     Dosage: 4 MG/TRNASBUCCAL
     Route: 002
     Dates: start: 20040101
  2. LISINOPRIL [Concomitant]
  3. EZETIMIBE [Concomitant]

REACTIONS (6)
  - CIRCULATORY COLLAPSE [None]
  - DIZZINESS [None]
  - MYOCARDIAL INFARCTION [None]
  - PALLOR [None]
  - RESPIRATORY ARREST [None]
  - SKIN DISCOLOURATION [None]
